FAERS Safety Report 5332209-7 (Version None)
Quarter: 2007Q2

REPORT INFORMATION
  Report Type: 
  Country: None (occurrence: None)
  Receive Date: 20070306
  Receipt Date: 20060317
  Transmission Date: 20071010
  Serious: Yes (Hospitalization)
  Sender: FDA-Public Use
  Company Number: A03200601532

PATIENT
  Age: 56 Year
  Sex: Female
  Weight: 54.6 kg

DRUGS (17)
  1. PLAVIX [Suspect]
     Indication: CEREBROVASCULAR ACCIDENT
     Dosage: ORAL
     Route: 048
  2. FUROSEMIDE [Concomitant]
  3. INSULIN [Concomitant]
  4. PANTOPRAZOLE SODIUM [Concomitant]
  5. METFORMIN HYDROCHLORIDE [Concomitant]
  6. ESCITALOPRAM OXALATE [Concomitant]
  7. AMITRIPTYLINE HYDROCHLORIDE [Concomitant]
  8. EZETIMIBE [Concomitant]
  9. ISOSORBIDE MONONITRATE [Concomitant]
  10. METOPROLOL SUCCINATE [Concomitant]
  11. NIFEDIPINE [Concomitant]
  12. DIGOXIN [Concomitant]
  13. VALSARTAN [Concomitant]
  14. WARFARIN SODIUM [Concomitant]
  15. HEPARIN-FRACTION, SODIUM SALT [Concomitant]
  16. HYDRALAZINE HYDROCHLORIDE [Concomitant]
  17. HYDROMORPHONE HYDROCHLORIDE [Concomitant]

REACTIONS (2)
  - ARTERIAL THROMBOSIS [None]
  - DRUG INEFFECTIVE [None]
